FAERS Safety Report 15486463 (Version 1)
Quarter: 2018Q4

REPORT INFORMATION
  Report Type: Spontaneous
  Country: US (occurrence: US)
  Receive Date: 20181011
  Receipt Date: 20181011
  Transmission Date: 20190205
  Serious: No
  Sender: FDA-Public Use
  Company Number: US-JNJFOC-20180935194

PATIENT
  Sex: Female
  Weight: 49 kg

DRUGS (3)
  1. GLUTEN [Concomitant]
     Active Substance: WHEAT GLUTEN
  2. IMBRUVICA [Suspect]
     Active Substance: IBRUTINIB
     Indication: LYMPHOCYTIC LEUKAEMIA
     Route: 048
  3. GLYCYRRHIZA GLABRA ROOT [Concomitant]

REACTIONS (2)
  - Gastrointestinal disorder [Unknown]
  - Weight decreased [Unknown]
